FAERS Safety Report 5200505-X (Version None)
Quarter: 2007Q1

REPORT INFORMATION
  Report Type: 
  Country: None (occurrence: None)
  Receive Date: 20070105
  Receipt Date: 20061227
  Transmission Date: 20070707
  Serious: Yes (Other)
  Sender: FDA-Public Use
  Company Number: FR-ABBOTT-06P-056-0354457-00

PATIENT
  Age: 20 Year
  Sex: Female

DRUGS (5)
  1. DEPAKOTE [Suspect]
     Indication: DRUG USE FOR UNKNOWN INDICATION
     Dates: start: 20061001
  2. SEROPLEX FILM-COATED TABLETS [Suspect]
     Indication: DRUG USE FOR UNKNOWN INDICATION
     Dates: start: 20061001
  3. MIANSERIN HYDROCHLORIDE [Suspect]
     Indication: DRUG USE FOR UNKNOWN INDICATION
     Dates: start: 20061001
  4. ZOPICLONE [Suspect]
     Indication: DRUG USE FOR UNKNOWN INDICATION
     Dates: start: 20061001
  5. BETA-LACTAMIN [Concomitant]
     Indication: DRUG USE FOR UNKNOWN INDICATION
     Dates: start: 20060101

REACTIONS (1)
  - GUTTATE PSORIASIS [None]
